FAERS Safety Report 25719698 (Version 1)
Quarter: 2025Q3

REPORT INFORMATION
  Report Type: Spontaneous
  Country: GB (occurrence: GB)
  Receive Date: 20250825
  Receipt Date: 20250825
  Transmission Date: 20251020
  Serious: Yes (Disabling, Other)
  Sender: CELLTRION
  Company Number: GB-CELLTRION INC.-2025GB029015

PATIENT

DRUGS (2)
  1. YUFLYMA [Suspect]
     Active Substance: ADALIMUMAB-AATY
     Indication: Psoriasis
     Dosage: INJECTING EVERY TWO WEEKS
     Route: 058
  2. YUFLYMA [Suspect]
     Active Substance: ADALIMUMAB-AATY

REACTIONS (3)
  - Hallucination [Unknown]
  - Tremor [Unknown]
  - Device malfunction [Unknown]

NARRATIVE: CASE EVENT DATE: 20250714
